FAERS Safety Report 8029709-8 (Version None)
Quarter: 2012Q1

REPORT INFORMATION
  Report Type: 
  Country: None (occurrence: None)
  Receive Date: 20120104
  Receipt Date: 20111222
  Transmission Date: 20120608
  Serious: Yes (Death)
  Sender: FDA-Public Use
  Company Number: DSA_48631_2011

PATIENT
  Age: 49 Year
  Sex: Female

DRUGS (6)
  1. GABAPENTIN [Suspect]
     Dosage: (DF UNKNOWN)
  2. HYDROCHLOROTHIAZIDE [Suspect]
     Dosage: (DF UNKNOWN)
  3. DILTIAZEM [Suspect]
     Dosage: (DF ORAL)
     Route: 048
  4. VALPROIC ACID [Suspect]
     Dosage: (DF UNKNOWN)
  5. WARFARIN SODIUM [Suspect]
     Dosage: (DF UNKNOWN)
  6. LISINOPRIL [Suspect]
     Dosage: (DF UNKNOWN)

REACTIONS (2)
  - COMPLETED SUICIDE [None]
  - TOXICITY TO VARIOUS AGENTS [None]
